FAERS Safety Report 5029749-7 (Version None)
Quarter: 2006Q2

REPORT INFORMATION
  Report Type: 
  Country: None (occurrence: None)
  Receive Date: 20060614
  Receipt Date: 20060526
  Transmission Date: 20061013
  Serious: Yes (Other)
  Sender: FDA-Public Use
  Company Number: US200605000978

PATIENT
  Age: 49 Year
  Sex: Female

DRUGS (9)
  1. ZYPREXA [Suspect]
     Indication: SCHIZOAFFECTIVE DISORDER
     Dosage: 20 MG
     Dates: start: 20000201
  2. ADVAIR DISKUS 100/50 [Concomitant]
  3. TOPAMAX [Concomitant]
  4. KEPPRA [Concomitant]
  5. ABILIFY [Concomitant]
  6. DETROL [Concomitant]
  7. PRILOSEC [Concomitant]
  8. COLACE (DOCUSATE SODIUM) [Concomitant]
  9. MELATONIN [Concomitant]

REACTIONS (3)
  - CHOLELITHIASIS [None]
  - PANCREATIC CYST [None]
  - WEIGHT FLUCTUATION [None]
